FAERS Safety Report 19244128 (Version 1)
Quarter: 2021Q2

REPORT INFORMATION
  Report Type: Spontaneous
  Country: US (occurrence: US)
  Receive Date: 20210512
  Receipt Date: 20210512
  Transmission Date: 20210717
  Serious: Yes (Other)
  Sender: FDA-Public Use
  Company Number: US-NOVEN PHARMACEUTICALS, INC.-2021-NOV-US003378

PATIENT
  Age: 13 Year
  Sex: Male

DRUGS (3)
  1. DAYTRANA [Suspect]
     Active Substance: METHYLPHENIDATE
     Indication: ATTENTION DEFICIT HYPERACTIVITY DISORDER
     Dosage: 15 MG/ 9 HOURS, 1 PATCH FOR 9 HOURS, DAILY
     Route: 062
     Dates: start: 202101
  2. FLUPHENAZINE HYDROCHLORIDE. [Concomitant]
     Active Substance: FLUPHENAZINE HYDROCHLORIDE
     Indication: TIC
     Dosage: 6 MG, DAILY
     Route: 048
  3. FLUPHENAZINE HYDROCHLORIDE. [Concomitant]
     Active Substance: FLUPHENAZINE HYDROCHLORIDE
     Indication: TOURETTE^S DISORDER

REACTIONS (6)
  - Anger [Not Recovered/Not Resolved]
  - Accidental exposure to product [Recovered/Resolved]
  - Therapeutic product effect incomplete [Not Recovered/Not Resolved]
  - Device difficult to use [Not Recovered/Not Resolved]
  - Contraindicated product prescribed [Not Recovered/Not Resolved]
  - Device breakage [Not Recovered/Not Resolved]

NARRATIVE: CASE EVENT DATE: 202101
